FAERS Safety Report 7369022-5 (Version None)
Quarter: 2011Q1

REPORT INFORMATION
  Report Type: 
  Country: None (occurrence: None)
  Receive Date: 20110308
  Receipt Date: 20110301
  Transmission Date: 20110831
  Serious: Yes (Hospitalization)
  Sender: FDA-Public Use
  Company Number: 2007-168983-NL

PATIENT
  Age: 34 Year
  Sex: Female
  Weight: 113 kg

DRUGS (3)
  1. NUVARING [Suspect]
     Indication: CONTRACEPTION
     Dates: start: 20050901, end: 20051201
  2. NUVARING [Suspect]
     Indication: CONTRACEPTION
     Dates: start: 20070101, end: 20070601
  3. PHENTERMINE [Concomitant]

REACTIONS (23)
  - LOBAR PNEUMONIA [None]
  - DIZZINESS [None]
  - PULMONARY EMBOLISM [None]
  - HAEMATOMA [None]
  - ANAEMIA [None]
  - DIARRHOEA [None]
  - HYPERGLYCAEMIA [None]
  - MENORRHAGIA [None]
  - ABDOMINAL PAIN [None]
  - ABDOMINAL PAIN UPPER [None]
  - HYPERLIPIDAEMIA [None]
  - LEUKOCYTOSIS [None]
  - NAUSEA [None]
  - LIMB INJURY [None]
  - CONTUSION [None]
  - UTERINE POLYP [None]
  - COUGH [None]
  - HYPERHIDROSIS [None]
  - HEART RATE IRREGULAR [None]
  - INTERVERTEBRAL DISC PROTRUSION [None]
  - PRESYNCOPE [None]
  - VOMITING [None]
  - COAGULATION TIME PROLONGED [None]
